FAERS Safety Report 7765180-9 (Version None)
Quarter: 2011Q3

REPORT INFORMATION
  Report Type: 
  Country: None (occurrence: None)
  Receive Date: 20110921
  Receipt Date: 20110909
  Transmission Date: 20111222
  Serious: Yes (Hospitalization)
  Sender: FDA-Public Use
  Company Number: KR-BAYER-2011-083509

PATIENT

DRUGS (1)
  1. SORAFENIB (RAF KINASE INHIBITOR) [Suspect]

REACTIONS (2)
  - DIARRHOEA HAEMORRHAGIC [None]
  - ASCITES [None]
